FAERS Safety Report 25950957 (Version 1)
Quarter: 2025Q4

REPORT INFORMATION
  Report Type: Spontaneous
  Country: GB (occurrence: GB)
  Receive Date: 20251023
  Receipt Date: 20251023
  Transmission Date: 20260118
  Serious: Yes (Other)
  Sender: HIKMA
  Company Number: None

PATIENT
  Sex: Female

DRUGS (6)
  1. IRINOTECAN [Suspect]
     Active Substance: IRINOTECAN
     Indication: Colon cancer
     Dosage: 164 MILLIGRAM
     Route: 041
  2. ATROPINE [Concomitant]
     Active Substance: ATROPINE
     Indication: Product used for unknown indication
     Dosage: UNKNOWN
     Route: 065
  3. DEXAMETHASONE [Concomitant]
     Active Substance: DEXAMETHASONE
     Indication: Product used for unknown indication
     Dosage: UNKNOWN
     Route: 065
  4. FLUOROURACIL [Concomitant]
     Active Substance: FLUOROURACIL
     Indication: Product used for unknown indication
     Dosage: UNKNOWN
     Route: 065
  5. FOSAPREPITANT [Concomitant]
     Active Substance: FOSAPREPITANT
     Indication: Product used for unknown indication
     Dosage: UNKNOWN
     Route: 065
  6. PEGFILGRASTIM [Concomitant]
     Active Substance: PEGFILGRASTIM
     Indication: Product used for unknown indication
     Dosage: UNKNOWN
     Route: 065

REACTIONS (3)
  - Contusion [Unknown]
  - Neuropathy peripheral [Unknown]
  - Paraesthesia [Unknown]

NARRATIVE: CASE EVENT DATE: 20251008
